FAERS Safety Report 9513020 (Version 3)
Quarter: 2013Q3

REPORT INFORMATION
  Report Type: Spontaneous
  Country: US (occurrence: US)
  Receive Date: 20130910
  Receipt Date: 20130913
  Transmission Date: 20140515
  Serious: Yes (Hospitalization, Other)
  Sender: FDA-Public Use
  Company Number: US-PFIZER INC-2013130121

PATIENT
  Age: 56 Year
  Sex: Female
  Weight: 86 kg

DRUGS (4)
  1. DILANTIN [Suspect]
     Indication: MULTIPLE SCLEROSIS
     Dosage: 300 MG (100MG 3 CAPSULES), 3X/DAY
     Route: 048
     Dates: start: 20041021, end: 20041021
  2. DILANTIN [Suspect]
     Dosage: 200 MG (100MG 2 CAPSULES), 2X/DAY
     Route: 048
     Dates: start: 20041022, end: 20041031
  3. IMITREX [Concomitant]
     Dosage: 50 MG, 1X/DAY AS NEEDED
     Route: 048
  4. LEVOXYL [Concomitant]
     Dosage: UNK

REACTIONS (2)
  - Stevens-Johnson syndrome [Recovering/Resolving]
  - Toxic epidermal necrolysis [Recovering/Resolving]
